FAERS Safety Report 7266443-6 (Version None)
Quarter: 2011Q1

REPORT INFORMATION
  Report Type: 
  Country: None (occurrence: None)
  Receive Date: 20110131
  Receipt Date: 20110117
  Transmission Date: 20110831
  Serious: Yes (Hospitalization)
  Sender: FDA-Public Use
  Company Number: CO-MYLANLABS-2011S1001282

PATIENT
  Age: 27 Year
  Sex: Male

DRUGS (7)
  1. FLURAZEPAM [Suspect]
     Indication: OVERDOSE
     Dosage: EIGHT 30MG TABLETS
     Route: 065
  2. DEXKETOPROFEN [Suspect]
     Indication: OVERDOSE
     Dosage: SIX 25MG TABLETS
     Route: 065
  3. RUPATADINE [Suspect]
     Indication: OVERDOSE
     Dosage: TEN 10MG TABLETS
     Route: 065
  4. MIRTAZAPINE [Suspect]
     Indication: OVERDOSE
     Route: 065
  5. DIAZEPAM [Suspect]
     Indication: OVERDOSE
     Dosage: EIGHT 10MG TABLETS
     Route: 065
  6. IBUPROFEN [Suspect]
     Indication: OVERDOSE
     Dosage: TEN 600MG TABLETS
     Route: 065
  7. CIPROFLOXACIN [Suspect]
     Indication: OVERDOSE
     Route: 065

REACTIONS (6)
  - ASPIRATION BRONCHIAL [None]
  - ELECTROCARDIOGRAM ABNORMAL [None]
  - SUICIDE ATTEMPT [None]
  - RENAL FAILURE ACUTE [None]
  - INTENTIONAL OVERDOSE [None]
  - ELECTROCARDIOGRAM QT PROLONGED [None]
